FAERS Safety Report 23102799 (Version 1)
Quarter: 2023Q4

REPORT INFORMATION
  Report Type: Report from Study
  Country: US (occurrence: None)
  Receive Date: 20231025
  Receipt Date: 20231025
  Transmission Date: 20240110
  Serious: Yes (Hospitalization)
  Sender: FDA-Public Use
  Company Number: 2023A238058

PATIENT
  Sex: Male
  Weight: 91.8 kg

DRUGS (1)
  1. TAGRISSO [Suspect]
     Active Substance: OSIMERTINIB
     Indication: Lung neoplasm malignant
     Route: 048
     Dates: start: 20230109

REACTIONS (2)
  - Acute respiratory failure [Recovering/Resolving]
  - Interstitial lung disease [Recovering/Resolving]
